FAERS Safety Report 22715702 (Version 2)
Quarter: 2024Q2

REPORT INFORMATION
  Report Type: Other
  Country: NP (occurrence: NP)
  Receive Date: 20230718
  Receipt Date: 20240422
  Transmission Date: 20240716
  Serious: Yes (Death, Other)
  Sender: FDA-Public Use
  Company Number: NP-Appco Pharma LLC-2143813

PATIENT

DRUGS (5)
  1. DOXYCYCLINE [Suspect]
     Active Substance: DOXYCYCLINE
     Indication: Product used for unknown indication
     Route: 064
  2. POTASSIUM CHLORIDE [Suspect]
     Active Substance: POTASSIUM CHLORIDE
     Route: 064
  3. CLAVULANATE POTASSIUM [Suspect]
     Active Substance: CLAVULANATE POTASSIUM
     Route: 064
  4. TICARCILLIN [Suspect]
     Active Substance: TICARCILLIN
     Route: 064
  5. OXYTOCIN [Suspect]
     Active Substance: OXYTOCIN
     Route: 064

REACTIONS (6)
  - Foetal exposure during pregnancy [Unknown]
  - Neural tube defect [Fatal]
  - Foetal death [Fatal]
  - Craniorachischisis [Unknown]
  - Conjoined twins [Unknown]
  - Cerebral ventricle dilatation [Unknown]
